FAERS Safety Report 12508279 (Version 1)
Quarter: 2016Q2

REPORT INFORMATION
  Report Type: Spontaneous
  Country: US (occurrence: US)
  Receive Date: 20160629
  Receipt Date: 20160629
  Transmission Date: 20160815
  Serious: No
  Sender: FDA-Public Use
  Company Number: US-BAYER-2016-127662

PATIENT
  Age: 91 Year
  Sex: Male
  Weight: 73.47 kg

DRUGS (1)
  1. MIRALAX [Suspect]
     Active Substance: POLYETHYLENE GLYCOL 3350
     Indication: CONSTIPATION
     Dosage: 1 DF, ON AND OFF EVERY FEW DAYS
     Route: 048
     Dates: end: 20160624

REACTIONS (1)
  - Blood potassium increased [Not Recovered/Not Resolved]
